FAERS Safety Report 19761767 (Version 1)
Quarter: 2021Q3

REPORT INFORMATION
  Report Type: Spontaneous
  Country: GB (occurrence: GB)
  Receive Date: 20210829
  Receipt Date: 20210829
  Transmission Date: 20211014
  Serious: Yes (Other)
  Sender: FDA-Public Use
  Company Number: None

PATIENT
  Age: 31 Week
  Sex: Female
  Weight: 60 kg

DRUGS (1)
  1. DERMOVATE [Suspect]
     Active Substance: CLOBETASOL
     Indication: ECZEMA
     Route: 061
     Dates: start: 20200709, end: 20200716

REACTIONS (11)
  - Chills [None]
  - Pain of skin [None]
  - Body temperature fluctuation [None]
  - Skin wrinkling [None]
  - COVID-19 [None]
  - Swelling [None]
  - Maternal exposure timing unspecified [None]
  - Ear discomfort [None]
  - Condition aggravated [None]
  - Hyperhidrosis [None]
  - Pregnancy [None]

NARRATIVE: CASE EVENT DATE: 20200716
